FAERS Safety Report 24657680 (Version 1)
Quarter: 2024Q4

REPORT INFORMATION
  Report Type: Report from Study
  Country: US (occurrence: US)
  Receive Date: 20241125
  Receipt Date: 20241125
  Transmission Date: 20250115
  Serious: Yes (Other)
  Sender: ALEXION PHARMACEUTICALS
  Company Number: US-AstraZeneca-CH-00749028A

PATIENT
  Weight: 82.086 kg

DRUGS (2)
  1. OSIMERTINIB [Suspect]
     Active Substance: OSIMERTINIB
     Indication: Non-small cell lung cancer
     Dosage: 80 MILLIGRAM, QD
  2. GILOTRIF [Concomitant]
     Active Substance: AFATINIB
     Route: 065

REACTIONS (6)
  - Cardiac disorder [Unknown]
  - Malignant neoplasm progression [Not Recovered/Not Resolved]
  - Dyspnoea [Unknown]
  - Wheezing [Unknown]
  - Heart valve incompetence [Unknown]
  - Chronic obstructive pulmonary disease [Unknown]
